FAERS Safety Report 23862213 (Version 1)
Quarter: 2024Q2

REPORT INFORMATION
  Report Type: Report from Study
  Country: CA (occurrence: CA)
  Receive Date: 20240516
  Receipt Date: 20240516
  Transmission Date: 20240715
  Serious: Yes (Hospitalization, Other)
  Sender: FDA-Public Use
  Company Number: CA-AKCEA THERAPEUTICS, INC.-2024IS004473

PATIENT

DRUGS (10)
  1. TEGSEDI [Suspect]
     Active Substance: INOTERSEN SODIUM
     Indication: Hereditary neuropathic amyloidosis
     Dosage: 284 MILLIGRAM, QW
     Route: 058
     Dates: start: 20200421
  2. CLARITIN [Concomitant]
     Active Substance: LORATADINE
     Indication: Hypersensitivity
     Dosage: UNK UNK, QD
     Route: 048
  3. VITAMIN D NOS [Concomitant]
     Active Substance: VITAMIN D NOS
     Indication: Supplementation therapy
     Dosage: 1000 MILLIGRAM, QD
     Route: 048
  4. VITAMIN C [Concomitant]
     Active Substance: ASCORBIC ACID
     Indication: Supplementation therapy
     Dosage: 1000 MILLIGRAM, QD
     Route: 048
  5. MIDODRINE [Concomitant]
     Active Substance: MIDODRINE
     Indication: Hypotension
     Dosage: GRADUATED: 1TAB BID, 2TABS BID, 1TABS TID
     Route: 048
     Dates: start: 2020
  6. VENIXXA [Concomitant]
     Indication: Haemorrhoids
     Dosage: UNK, PRN (AS NEEDED)
     Route: 065
  7. BISACODYL [Concomitant]
     Active Substance: BISACODYL
     Indication: Constipation
     Dosage: UNK, PRN (AS NEEDED)
     Route: 065
  8. LASIX [Concomitant]
     Active Substance: FUROSEMIDE
     Indication: Hypotension
     Dosage: UNK
     Route: 065
  9. LOMOTIL [Concomitant]
     Active Substance: ATROPINE SULFATE\DIPHENOXYLATE HYDROCHLORIDE
     Indication: Diarrhoea
     Dosage: UNK
     Route: 065
  10. VITAMIN A [Concomitant]
     Active Substance: VITAMIN A
     Indication: Vitamin A deficiency
     Dosage: 10,000 DAILY
     Route: 065

REACTIONS (6)
  - Shoulder fracture [Not Recovered/Not Resolved]
  - Fall [Not Recovered/Not Resolved]
  - Feeling abnormal [Not Recovered/Not Resolved]
  - Rehabilitation therapy [Unknown]
  - Vertigo [Unknown]
  - Contusion [Unknown]

NARRATIVE: CASE EVENT DATE: 20210601
